FAERS Safety Report 15806330 (Version 1)
Quarter: 2019Q1

REPORT INFORMATION
  Report Type: Spontaneous
  Country: US (occurrence: US)
  Receive Date: 20190109
  Receipt Date: 20190109
  Transmission Date: 20190417
  Serious: Yes (Other)
  Sender: FDA-Public Use
  Company Number: None

PATIENT
  Age: 70 Year
  Sex: Female
  Weight: 40.5 kg

DRUGS (1)
  1. SULFAMETH/TMP [Suspect]
     Active Substance: SULFAMETHOXAZOLE\TRIMETHOPRIM
     Indication: URINARY TRACT INFECTION
     Dosage: ?          QUANTITY:1 TABLET(S);?
     Route: 048
     Dates: start: 20181106, end: 20181107

REACTIONS (3)
  - Fatigue [None]
  - Muscular weakness [None]
  - Tremor [None]

NARRATIVE: CASE EVENT DATE: 20181107
